FAERS Safety Report 7921023-1 (Version None)
Quarter: 2011Q4

REPORT INFORMATION
  Report Type: 
  Country: None (occurrence: None)
  Receive Date: 20111117
  Receipt Date: 20111110
  Transmission Date: 20120403
  Serious: Yes (Hospitalization)
  Sender: FDA-Public Use
  Company Number: ES-SANOFI-AVENTIS-2011SA071996

PATIENT
  Age: 70 Year
  Sex: Male
  Weight: 93.5 kg

DRUGS (3)
  1. DOCETAXEL [Suspect]
     Route: 042
     Dates: start: 20111005
  2. BLINDED THERAPY [Suspect]
     Route: 048
  3. BLINDED THERAPY [Suspect]
     Route: 048
     Dates: start: 20111012

REACTIONS (4)
  - HYPOPHOSPHATAEMIA [None]
  - NEUTROPENIA [None]
  - DIARRHOEA [None]
  - HYPOKALAEMIA [None]
